FAERS Safety Report 14660330 (Version 2)
Quarter: 2018Q1

REPORT INFORMATION
  Report Type: Spontaneous
  Country: US (occurrence: US)
  Receive Date: 20180320
  Receipt Date: 20180326
  Transmission Date: 20180509
  Serious: Yes (Death, Other)
  Sender: FDA-Public Use
  Company Number: PHEH2018US010710

PATIENT
  Sex: Female

DRUGS (1)
  1. COSENTYX [Suspect]
     Active Substance: SECUKINUMAB
     Indication: PSORIATIC ARTHROPATHY
     Dosage: UNK
     Route: 058

REACTIONS (7)
  - Pulmonary oedema [Fatal]
  - Drug hypersensitivity [Unknown]
  - Cardiac disorder [Fatal]
  - Synovitis [Unknown]
  - Lip swelling [Unknown]
  - Angioedema [Unknown]
  - Oedema [Unknown]
